FAERS Safety Report 20625083 (Version 2)
Quarter: 2022Q1

REPORT INFORMATION
  Report Type: Spontaneous
  Country: FR (occurrence: None)
  Receive Date: 20220323
  Receipt Date: 20220323
  Transmission Date: 20220423
  Serious: Yes (Hospitalization, Other)
  Sender: FDA-Public Use
  Company Number: FR-ABBVIE-20K-056-3410564-00

PATIENT
  Age: 66 Year
  Sex: Male

DRUGS (44)
  1. METHOTREXATE [Suspect]
     Active Substance: METHOTREXATE
     Indication: Psoriasis
     Route: 048
     Dates: start: 20050725
  2. SORIATANE [Concomitant]
     Active Substance: ACITRETIN
     Indication: Psoriasis
     Route: 048
     Dates: start: 19911216, end: 200902
  3. STELARA [Concomitant]
     Active Substance: USTEKINUMAB
     Indication: Psoriasis
     Dosage: 45 MILLIGRAM EVERY 4 WEEK(S) 45 MILLIGRAM (1DAY)
     Route: 058
     Dates: start: 20150414, end: 20150414
  4. STELARA [Concomitant]
     Active Substance: USTEKINUMAB
     Dosage: 28 DAY; DOSE 1; UNITS UNKNOWN; 45 MILLIGRAM EVERY 4 WEEK(S) 45 MG, (45 MG AT D1, D28 THEN EVERY 12 W
     Route: 058
     Dates: start: 20150411, end: 20151102
  5. STELARA [Concomitant]
     Active Substance: USTEKINUMAB
     Dosage: 45 MILLIGRAM 45 MG (EVERY 12 WEEKS)
     Route: 058
     Dates: start: 20150611, end: 20151102
  6. STELARA [Concomitant]
     Active Substance: USTEKINUMAB
     Dosage: 45 MILLIGRAM EVERY 4 WEEK(S) 45 MG, Q4W
     Route: 058
     Dates: start: 20150514, end: 20150611
  7. STELARA [Concomitant]
     Active Substance: USTEKINUMAB
     Route: 058
     Dates: start: 20150414, end: 20150414
  8. ENBREL [Concomitant]
     Active Substance: ETANERCEPT
     Indication: Psoriasis
     Dosage: 100 MILLIGRAM EVERY 1 WEEK(S) 100 MG, QW ;EVERY 1 WEEK(S)
     Route: 058
     Dates: start: 20151105, end: 20171002
  9. ENBREL [Concomitant]
     Active Substance: ETANERCEPT
     Dosage: 50 MILLIGRAM EVERY 1 WEEK(S) 50 MG, QW
     Route: 058
     Dates: start: 20160206, end: 20171002
  10. ENBREL [Concomitant]
     Active Substance: ETANERCEPT
     Dosage: 50 MILLIGRAM EVERY 1 WEEK(S) 50 MG, QW
     Route: 058
     Dates: start: 20091012, end: 200912
  11. ENBREL [Concomitant]
     Active Substance: ETANERCEPT
     Dosage: 50 MILLIGRAM EVERY 1 WEEK(S) 50 MG, QW
     Route: 058
     Dates: start: 20110829, end: 20150205
  12. ENBREL [Concomitant]
     Active Substance: ETANERCEPT
     Dosage: 100 MILLIGRAM EVERY 1 WEEK(S) 100 MG, QW
     Route: 058
     Dates: start: 20151105, end: 20160205
  13. ENBREL [Concomitant]
     Active Substance: ETANERCEPT
     Dosage: 100 MILLIGRAM EVERY 1 WEEK(S) 100 MG, QW
     Route: 058
     Dates: start: 20090211, end: 20090510
  14. ENBREL [Concomitant]
     Active Substance: ETANERCEPT
     Dosage: UNK (2X/WEEK UNTIL 05-FEB-2016 THEN1X/WEEK)
     Route: 058
     Dates: start: 20090511, end: 20090810
  15. ENBREL [Concomitant]
     Active Substance: ETANERCEPT
     Dosage: 50 MILLIGRAM EVERY 1 WEEK(S) 50 MG, QW
     Route: 058
     Dates: start: 20110502, end: 20110828
  16. HUMIRA [Concomitant]
     Active Substance: ADALIMUMAB
     Indication: Psoriasis
     Dosage: 80 MILLIGRAM EVERY 1 DAY(S) 80 MG, QW
     Route: 058
     Dates: start: 20150212, end: 20150212
  17. HUMIRA [Concomitant]
     Active Substance: ADALIMUMAB
     Dosage: 40 MILLIGRAM EVERY 1 WEEK(S) 40 MILLIGRAM
     Route: 058
     Dates: start: 2015, end: 20150504
  18. HUMIRA [Concomitant]
     Active Substance: ADALIMUMAB
     Dosage: 40 MILLIGRAM 40 MG, Q2W
     Route: 058
     Dates: start: 20150219, end: 20150504
  19. HUMIRA [Concomitant]
     Active Substance: ADALIMUMAB
     Dosage: 40 MILLIGRAM EVERY 1 WEEK(S) 40 MG, (80 MG AT D1 THEN 40 MG)
     Route: 058
  20. COSENTYX [Concomitant]
     Active Substance: SECUKINUMAB
     Indication: Psoriasis
     Dosage: 300 MILLIGRAM EVERY 4 WEEK(S) 300 MG, CYCLIC
     Route: 058
     Dates: start: 20171020, end: 20180628
  21. COSENTYX [Concomitant]
     Active Substance: SECUKINUMAB
     Dosage: 300 MILLIGRAM EVERY 1 WEEK(S) 300 MG, QW
     Route: 058
     Dates: start: 20171020, end: 20171117
  22. COSENTYX [Concomitant]
     Active Substance: SECUKINUMAB
     Dosage: 300 MILLIGRAM EVERY 4 WEEK(S) 300 MG, Q4W
     Route: 058
     Dates: start: 20171117, end: 20180628
  23. DAIVOBET [Concomitant]
     Active Substance: BETAMETHASONE DIPROPIONATE\CALCIPOTRIENE
     Dosage: 1 OT
     Route: 003
  24. DEXERYL [Concomitant]
     Route: 003
  25. GLIMEPIRIDE [Concomitant]
     Active Substance: GLIMEPIRIDE
     Route: 048
  26. METFORMIN HYDROCHLORIDE [Concomitant]
     Active Substance: METFORMIN HYDROCHLORIDE
     Route: 048
  27. SPIRONOLACTONE [Concomitant]
     Active Substance: SPIRONOLACTONE
     Route: 065
  28. LANTUS [Concomitant]
     Active Substance: INSULIN GLARGINE
     Route: 065
  29. FOLIC ACID [Concomitant]
     Active Substance: FOLIC ACID
     Route: 065
  30. DUPHALAC [Concomitant]
     Active Substance: LACTULOSE
     Route: 065
  31. KAYEXALATE [Concomitant]
     Active Substance: SODIUM POLYSTYRENE SULFONATE
     Route: 065
     Dates: start: 20180812, end: 201808
  32. DESONIDE [Concomitant]
     Active Substance: DESONIDE
     Route: 065
  33. PRIMPERAN [Concomitant]
     Active Substance: METOCLOPRAMIDE HYDROCHLORIDE
     Route: 065
  34. RIFAXIMIN [Concomitant]
     Active Substance: RIFAXIMIN
     Route: 065
  35. NOVORAPID [Concomitant]
     Active Substance: INSULIN ASPART
     Route: 065
  36. ACUPAN [Concomitant]
     Active Substance: NEFOPAM HYDROCHLORIDE
     Route: 065
  37. ENSTILAR [Concomitant]
     Active Substance: BETAMETHASONE DIPROPIONATE\CALCIPOTRIENE HYDRATE
     Route: 065
  38. LAMISIL [Concomitant]
     Active Substance: TERBINAFINE HYDROCHLORIDE
     Route: 065
  39. BETAMETHASONE VALERATE [Concomitant]
     Active Substance: BETAMETHASONE VALERATE
     Indication: Skin lesion
     Route: 065
  40. AMOROLFINE HYDROCHLORIDE [Concomitant]
     Active Substance: AMOROLFINE HYDROCHLORIDE
     Route: 065
  41. PANTOPRAZOLE [Concomitant]
     Active Substance: PANTOPRAZOLE
     Route: 065
  42. FUROSEMIDE [Concomitant]
     Active Substance: FUROSEMIDE
     Route: 065
  43. VOGALENE [Concomitant]
     Active Substance: METOPIMAZINE
     Route: 065
  44. BIFONAZOLE\UREA [Concomitant]
     Active Substance: BIFONAZOLE\UREA
     Route: 065

REACTIONS (5)
  - Hepatocellular carcinoma [Not Recovered/Not Resolved]
  - Abdominal distension [Not Recovered/Not Resolved]
  - Abdominal pain [Not Recovered/Not Resolved]
  - Hepatic lesion [Recovering/Resolving]
  - Ascites [Recovering/Resolving]

NARRATIVE: CASE EVENT DATE: 20180531
